FAERS Safety Report 5330339-7 (Version None)
Quarter: 2007Q2

REPORT INFORMATION
  Report Type: 
  Country: None (occurrence: None)
  Receive Date: 20070521
  Receipt Date: 20070509
  Transmission Date: 20071010
  Serious: Yes (Congenital Anomaly, Other)
  Sender: FDA-Public Use
  Company Number: US-PFIZER INC-2006089733

PATIENT
  Sex: Male
  Weight: 3.3 kg

DRUGS (3)
  1. DILANTIN [Suspect]
     Indication: EPILEPSY
     Dosage: TEXT:UNKNOWN-FREQ:UNKNOWN
     Route: 065
  2. LAMICTAL [Suspect]
     Indication: EPILEPSY
     Dosage: TEXT:UNKNOWN-FREQ:UNKNOWN
     Route: 065
  3. TOPAMAX [Suspect]
     Indication: EPILEPSY
     Dosage: TEXT:UNKNOWN-FREQ:UNKNOWN
     Route: 065

REACTIONS (4)
  - CONGENITAL ANOMALY [None]
  - DRUG EXPOSURE DURING PREGNANCY [None]
  - SPINA BIFIDA OCCULTA [None]
  - SPINAL CORD COMPRESSION [None]
